FAERS Safety Report 5509771-4 (Version None)
Quarter: 2007Q4

REPORT INFORMATION
  Report Type: 
  Country: None (occurrence: None)
  Receive Date: 20071107
  Receipt Date: 20071107
  Transmission Date: 20080405
  Serious: Yes (Hospitalization)
  Sender: FDA-Public Use
  Company Number: None

PATIENT
  Age: 83 Year
  Sex: Male

DRUGS (2)
  1. DONEPEZIL HCL [Suspect]
     Indication: HYPERTENSION
     Dosage: 10MG HS PO
     Route: 048
     Dates: start: 20030319, end: 20070921
  2. ENALAPRIL MALEATE [Suspect]
     Indication: COGNITIVE DISORDER
     Dosage: 10MG EVERY DAY PO
     Route: 048
     Dates: start: 20051027, end: 20070921

REACTIONS (2)
  - DIZZINESS [None]
  - HYPOTENSION [None]
